FAERS Safety Report 6996748-5 (Version None)
Quarter: 2010Q3

REPORT INFORMATION
  Report Type: 
  Country: None (occurrence: None)
  Receive Date: 20100918
  Receipt Date: 20090803
  Transmission Date: 20110219
  Serious: No
  Sender: FDA-Public Use
  Company Number: US-WYE-H09950409

PATIENT
  Age: 68 Year
  Sex: Female
  Weight: 61.29 kg

DRUGS (2)
  1. ALAVERT [Suspect]
     Indication: HYPERSENSITIVITY
     Dosage: 1 AS NEEDED (ONLY TOOK TWICE)
     Route: 048
     Dates: start: 20090601, end: 20090626
  2. OXYGEN [Concomitant]

REACTIONS (2)
  - DRUG EFFECT DECREASED [None]
  - NASAL CONGESTION [None]
